FAERS Safety Report 9303771 (Version 3)
Quarter: 2013Q3

REPORT INFORMATION
  Report Type: Spontaneous
  Country: US (occurrence: US)
  Receive Date: 20130522
  Receipt Date: 20130826
  Transmission Date: 20140515
  Serious: Yes (Hospitalization)
  Sender: FDA-Public Use
  Company Number: US-GLAXOSMITHKLINE-A1023992A

PATIENT
  Sex: Male

DRUGS (2)
  1. ADVAIR [Suspect]
     Indication: CHRONIC OBSTRUCTIVE PULMONARY DISEASE
     Dosage: 1PUFF TWICE PER DAY
     Route: 055
  2. SPIRIVA [Concomitant]

REACTIONS (5)
  - Lung neoplasm malignant [Unknown]
  - Confusional state [Unknown]
  - Nervousness [Unknown]
  - Pneumonia [Unknown]
  - Product quality issue [Unknown]
